FAERS Safety Report 6797824-2 (Version None)
Quarter: 2010Q2

REPORT INFORMATION
  Report Type: 
  Country: None (occurrence: None)
  Receive Date: 20100623
  Receipt Date: 20100607
  Transmission Date: 20101027
  Serious: Yes (Other)
  Sender: FDA-Public Use
  Company Number: ACO_00825_2010

PATIENT
  Sex: Female
  Weight: 43.0917 kg

DRUGS (1)
  1. AMPYRA [Suspect]
     Indication: GAIT DISTURBANCE
     Dosage: (10 MG BID ORAL)
     Route: 048
     Dates: start: 20100501, end: 20100503

REACTIONS (4)
  - AMNESIA [None]
  - CONFUSIONAL STATE [None]
  - DRUG PRESCRIBING ERROR [None]
  - FEELING ABNORMAL [None]
